FAERS Safety Report 4551218-9 (Version None)
Quarter: 2005Q1

REPORT INFORMATION
  Report Type: 
  Country: None (occurrence: None)
  Receive Date: 20050106
  Receipt Date: 20041223
  Transmission Date: 20050727
  Serious: Yes (Hospitalization)
  Sender: FDA-Public Use
  Company Number: 2004EU002264

PATIENT
  Age: 58 Year
  Sex: Female

DRUGS (6)
  1. PROGRAF [Suspect]
     Dosage: 18 MG, D, ORAL
     Route: 048
     Dates: start: 20031121, end: 20040103
  2. DEZACOR (DEFLAZACORT) [Concomitant]
  3. ALDACTONE [Concomitant]
  4. PANTOPRAZOLE (PANTOPRAZOLE) [Concomitant]
  5. PHENYTOIN SODIUM [Concomitant]
  6. TARDYFERON  /GFR/ (FERROUS SULFATE) [Concomitant]

REACTIONS (4)
  - AGGRESSION [None]
  - CONFUSIONAL STATE [None]
  - NEUROPATHY [None]
  - SPEECH DISORDER [None]
